FAERS Safety Report 16879717 (Version 1)
Quarter: 2019Q4

REPORT INFORMATION
  Report Type: Spontaneous
  Country: PL (occurrence: PL)
  Receive Date: 20191003
  Receipt Date: 20191003
  Transmission Date: 20200122
  Serious: Yes (Other)
  Sender: FDA-Public Use
  Company Number: PL-PFIZER INC-2019420435

PATIENT
  Age: 67 Year
  Sex: Male

DRUGS (3)
  1. PAMIDRONATE DISODIUM. [Suspect]
     Active Substance: PAMIDRONATE DISODIUM
     Dosage: 90 MG, UNK (BREAK FOR 2 WEEKS )
     Route: 042
  2. MIDOSTAURIN [Suspect]
     Active Substance: MIDOSTAURIN
     Dosage: 100 MG, TWICE A DAY (BID)
     Route: 065
  3. PAMIDRONATE DISODIUM. [Suspect]
     Active Substance: PAMIDRONATE DISODIUM
     Dosage: 90 MG, EVERY 4-5 WEEKS (NEARLY 5 MONTHS OF THERAPY)
     Route: 042

REACTIONS (7)
  - Drug intolerance [Unknown]
  - Diarrhoea [Unknown]
  - Pulmonary embolism [Unknown]
  - Vomiting [Unknown]
  - Tryptase increased [Recovering/Resolving]
  - Pneumonia [Unknown]
  - Nausea [Unknown]
